FAERS Safety Report 25744952 (Version 2)
Quarter: 2025Q3

REPORT INFORMATION
  Report Type: Spontaneous
  Country: JP (occurrence: JP)
  Receive Date: 20250901
  Receipt Date: 20250918
  Transmission Date: 20251021
  Serious: Yes (Hospitalization, Other)
  Sender: BRISTOL-MYERS SQUIBB COMPANY
  Company Number: JP-BRISTOL-MYERS SQUIBB COMPANY-2025-119654

PATIENT
  Age: 93 Year
  Sex: Female
  Weight: 53.7 kg

DRUGS (3)
  1. REBLOZYL [Suspect]
     Active Substance: LUSPATERCEPT-AAMT
     Indication: Anaemia of malignant disease
  2. REBLOZYL [Suspect]
     Active Substance: LUSPATERCEPT-AAMT
     Dates: start: 202408, end: 202410
  3. ASPIRIN [Concomitant]
     Active Substance: ASPIRIN
     Indication: Venous stenosis

REACTIONS (4)
  - Foreign body ingestion [Unknown]
  - Decreased appetite [Unknown]
  - Pneumonia aspiration [Unknown]
  - Drug ineffective [Unknown]

NARRATIVE: CASE EVENT DATE: 20240101
